FAERS Safety Report 12662305 (Version 1)
Quarter: 2016Q3

REPORT INFORMATION
  Report Type: Spontaneous
  Country: US (occurrence: US)
  Receive Date: 20160817
  Receipt Date: 20160817
  Transmission Date: 20161109
  Serious: No
  Sender: FDA-Public Use
  Company Number: US-JUBILANT HOLLISTERSTIER LLC-1056459

PATIENT
  Age: 3 Year
  Sex: Female

DRUGS (10)
  1. POLLENS - WEEDS, GIANT, SHORT, WESTERN RAGWEED MIX [Suspect]
     Active Substance: AMBROSIA ARTEMISIIFOLIA POLLEN\AMBROSIA PSILOSTACHYA POLLEN\AMBROSIA TRIFIDA POLLEN
     Indication: ALLERGY TEST
     Dates: start: 20160206, end: 20160206
  2. STANDARDIZED CAT PELT [Suspect]
     Active Substance: FELIS CATUS DANDER
     Dates: start: 20160206, end: 20160206
  3. POSITIVE SKIN TEST CONTROL - HISTAMINE [Suspect]
     Active Substance: HISTAMINE
     Dates: start: 20160206, end: 20160206
  4. ALTERNARIA ALTERNATA. [Suspect]
     Active Substance: ALTERNARIA ALTERNATA
     Dates: start: 20160206, end: 20160206
  5. STANDARDIZED GRASS POLLEN, GRASS MIX 7 [Suspect]
     Active Substance: AGROSTIS GIGANTEA POLLEN\ANTHOXANTHUM ODORATUM POLLEN\DACTYLIS GLOMERATA POLLEN\FESTUCA PRATENSIS POLLEN\LOLIUM PERENNE POLLEN\PHLEUM PRATENSE POLLEN\POA PRATENSIS POLLEN
     Dates: start: 20160206, end: 20160206
  6. ANIMAL ALLERGENS, AP DOG HAIR AND DANDER CANIS SPP [Suspect]
     Active Substance: CANIS LUPUS FAMILIARIS DANDER\CANIS LUPUS FAMILIARIS HAIR
     Dates: start: 20160206, end: 20160206
  7. POLLENS - TREES, OAK MIX [Suspect]
     Active Substance: QUERCUS ALBA POLLEN\QUERCUS RUBRA POLLEN\QUERCUS VIRGINIANA POLLEN
     Dates: start: 20160206, end: 20160206
  8. STANDARDIZED MITE D PTERONYSSINUS [Suspect]
     Active Substance: DERMATOPHAGOIDES PTERONYSSINUS
     Dates: start: 20160206, end: 20160206
  9. INSECTS (WHOLE BODY) COCKROACH MIX [Suspect]
     Active Substance: BLATELLA GERMANICA\PERIPLANETA AMERICANA
     Dates: start: 20160206, end: 20160206
  10. PLACEBO [Suspect]
     Active Substance: UNSPECIFIED INGREDIENT
     Dates: start: 20160206, end: 20160206

REACTIONS (5)
  - Pruritus [None]
  - Dermatitis contact [None]
  - Rash [None]
  - Skin reaction [None]
  - Erythema [None]

NARRATIVE: CASE EVENT DATE: 20160208
